FAERS Safety Report 21734411 (Version 1)
Quarter: 2022Q4

REPORT INFORMATION
  Report Type: Spontaneous
  Country: US (occurrence: US)
  Receive Date: 20221215
  Receipt Date: 20221215
  Transmission Date: 20230112
  Serious: Yes (Other)
  Sender: FDA-Public Use
  Company Number: US-BAYER-2022A168383

PATIENT
  Sex: Female

DRUGS (1)
  1. ASPIRIN [Suspect]
     Active Substance: ASPIRIN
     Dosage: 54 DF, ONCE
     Dates: start: 2011

REACTIONS (3)
  - Seizure [None]
  - Intentional overdose [None]
  - Suicide attempt [None]

NARRATIVE: CASE EVENT DATE: 20110101
